FAERS Safety Report 10717832 (Version 1)
Quarter: 2015Q1

REPORT INFORMATION
  Report Type: Spontaneous
  Country: US (occurrence: US)
  Receive Date: 20150116
  Receipt Date: 20150116
  Transmission Date: 20150721
  Serious: Yes (Other)
  Sender: FDA-Public Use
  Company Number: US-TEVA-534683USA

PATIENT
  Age: 76 Year
  Sex: Female

DRUGS (6)
  1. DOXORUBICIN [Suspect]
     Active Substance: DOXORUBICIN
     Indication: EXTRA-OSSEOUS EWING^S SARCOMA
     Dosage: ADMINISTERED IN 2000 AND 2012
     Route: 065
  2. CYCLOPHOSPHAMIDE. [Suspect]
     Active Substance: CYCLOPHOSPHAMIDE
     Indication: EXTRA-OSSEOUS EWING^S SARCOMA METASTATIC
     Dosage: ADMINISTERED IN 2000 AND 2012
     Route: 065
  3. ETOPOSIDE. [Concomitant]
     Active Substance: ETOPOSIDE
     Indication: EXTRA-OSSEOUS EWING^S SARCOMA METASTATIC
     Route: 065
  4. IFOSFAMIDE. [Concomitant]
     Active Substance: IFOSFAMIDE
     Indication: EXTRA-OSSEOUS EWING^S SARCOMA METASTATIC
     Route: 065
  5. DOXORUBICIN LIPOSOMAL [Suspect]
     Active Substance: DOXORUBICIN
     Indication: EXTRA-OSSEOUS EWING^S SARCOMA METASTATIC
     Route: 065
  6. VINCRISTINE [Suspect]
     Active Substance: VINCRISTINE
     Indication: EXTRA-OSSEOUS EWING^S SARCOMA METASTATIC
     Dosage: ADMINISTERED IN 2000 AND 2012
     Route: 065

REACTIONS (1)
  - Bone marrow failure [Unknown]
